FAERS Safety Report 4286038-6 (Version None)
Quarter: 2004Q1

REPORT INFORMATION
  Report Type: 
  Country: None (occurrence: None)
  Receive Date: 20040114
  Receipt Date: 20021213
  Transmission Date: 20041129
  Serious: Yes (Hospitalization)
  Sender: FDA-Public Use
  Company Number: 327774

PATIENT
  Age: 18 Year
  Sex: Male
  Weight: 24 kg

DRUGS (1)
  1. ROCEPHIN [Suspect]
     Indication: EYE INFECTION
     Dosage: 5 ML DAILY INTRAVENOUS
     Route: 042
     Dates: start: 20010914, end: 20010922

REACTIONS (5)
  - CHROMATURIA [None]
  - FATIGUE [None]
  - HAEMOLYTIC ANAEMIA [None]
  - JAUNDICE [None]
  - VOMITING [None]
